FAERS Safety Report 8108533-1 (Version None)
Quarter: 2012Q1

REPORT INFORMATION
  Report Type: 
  Country: None (occurrence: None)
  Receive Date: 20120202
  Receipt Date: 20120131
  Transmission Date: 20120608
  Serious: Yes (Death)
  Sender: FDA-Public Use
  Company Number: PHHY2011CA82277

PATIENT
  Sex: Female

DRUGS (8)
  1. ZOLEDRONOC ACID [Suspect]
     Dosage: 5 MG, ANUALLY
     Route: 042
     Dates: start: 20101105
  2. FLEXERIL [Concomitant]
  3. ZOLEDRONOC ACID [Suspect]
     Indication: OSTEOPOROSIS
     Dosage: 5 MG, ANUALLY
     Route: 042
     Dates: start: 20091118
  4. CRESTOR [Concomitant]
  5. REVENIL [Concomitant]
  6. IBUPROFEN (ADVIL) [Concomitant]
  7. ACETYLSALICYLIC ACID SRT [Concomitant]
  8. MICARDIS [Concomitant]

REACTIONS (1)
  - LUNG NEOPLASM MALIGNANT [None]
